FAERS Safety Report 9003353 (Version 1)
Quarter: 2013Q1

REPORT INFORMATION
  Report Type: Spontaneous
  Country: US (occurrence: US)
  Receive Date: 20130108
  Receipt Date: 20130108
  Transmission Date: 20140127
  Serious: No
  Sender: FDA-Public Use
  Company Number: US-B.I. PHARMACEUTICALS,INC./RIDGEFIELD-2013-BI-00427BP

PATIENT
  Age: 50 Year
  Sex: Female
  Weight: 56 kg

DRUGS (6)
  1. COMBIVENT [Suspect]
     Indication: CHRONIC OBSTRUCTIVE PULMONARY DISEASE
     Route: 055
     Dates: start: 201201
  2. VESICARE [Concomitant]
     Indication: STRESS URINARY INCONTINENCE
  3. NEURONTIN [Concomitant]
  4. AMBIEN [Concomitant]
     Indication: INSOMNIA
  5. SOMA [Concomitant]
  6. LISINOPRIL [Concomitant]
     Indication: HYPERTENSION

REACTIONS (5)
  - Pyrexia [Recovered/Resolved]
  - Dyspnoea [Not Recovered/Not Resolved]
  - Productive cough [Not Recovered/Not Resolved]
  - Pulmonary congestion [Not Recovered/Not Resolved]
  - Bronchitis [Not Recovered/Not Resolved]
